FAERS Safety Report 17917235 (Version 4)
Quarter: 2020Q3

REPORT INFORMATION
  Report Type: Spontaneous
  Country: DE (occurrence: DE)
  Receive Date: 20200619
  Receipt Date: 20200921
  Transmission Date: 20201103
  Serious: Yes (Hospitalization, Other)
  Sender: FDA-Public Use
  Company Number: DE-PFIZER INC-2020234920

PATIENT
  Age: 83 Year
  Sex: Female

DRUGS (12)
  1. HCT [Suspect]
     Active Substance: HYDROCHLOROTHIAZIDE
     Dosage: 12.5 MILLIGRAM, QD (12.5 MG, 1?0?0?0)
     Route: 048
  2. FEBUXOSTAT. [Suspect]
     Active Substance: FEBUXOSTAT
     Dosage: 80 MILLIGRAM, QD (80 MG, 1?0?0?0)
     Route: 048
  3. ELIQUIS [Suspect]
     Active Substance: APIXABAN
     Dosage: 2.5 MG, BID (1?0?1?0) (ONCE IN 12 HOURS)
     Route: 048
  4. RAMIPRIL. [Suspect]
     Active Substance: RAMIPRIL
     Dosage: 5 MG, BID (5 MG, 1?0?1?0) (ONCE IN 12 HOURS)
     Route: 048
  5. TORASEMID [Suspect]
     Active Substance: TORSEMIDE
     Dosage: 10 MILLIGRAM, BID (10 MG, 1?1?0?0) (ONCE IN 12 HOURS)
     Route: 048
  6. OMEPRAZOLE. [Concomitant]
     Active Substance: OMEPRAZOLE
     Dosage: 20 MILLIGRAM, QD (20 MG, 1?0?0?0)
     Route: 048
  7. DIGITOXIN [Concomitant]
     Active Substance: DIGITOXIN
     Dosage: 0.07 MILLIGRAM, QD (1?0?0?0)
     Route: 048
  8. HUMINSULIN BASAL [Concomitant]
     Active Substance: INSULIN HUMAN
     Dosage: 100 IE/ML, 0?0?30?0, AMPULLEN (300 IU 100 IU/ML)
     Route: 058
  9. AMLODIPINE [Concomitant]
     Active Substance: AMLODIPINE BESYLATE
     Dosage: 5 MILLIGRAM, QD (5 MG 1?0?0?0)
     Route: 048
  10. METOPROLOL. [Concomitant]
     Active Substance: METOPROLOL
     Dosage: BID (ONCE IN 12 HOURS), 23.75 MILLIGRAM (0.5?0?0.5?0)
     Route: 048
  11. HUMINSULIN NORMAL [Concomitant]
     Active Substance: INSULIN HUMAN
     Dosage: 100 IE/ML, 18?0?12?0, AMPULLEN
     Route: 058
  12. METFORMIN [Concomitant]
     Active Substance: METFORMIN HYDROCHLORIDE
     Dosage: 500 MG, BID (1?0?1?0) (ONCE IN 12 HOURS)
     Route: 048

REACTIONS (5)
  - Haematochezia [Recovering/Resolving]
  - Thirst [Recovering/Resolving]
  - Dehydration [Recovering/Resolving]
  - Product prescribing error [Unknown]
  - Weight decreased [Recovering/Resolving]
